FAERS Safety Report 15733285 (Version 1)
Quarter: 2018Q4

REPORT INFORMATION
  Report Type: Report from Study
  Country: US (occurrence: US)
  Receive Date: 20181218
  Receipt Date: 20181218
  Transmission Date: 20190205
  Serious: Yes (Other)
  Sender: FDA-Public Use
  Company Number: US-ROCHE-2231628

PATIENT
  Sex: Male
  Weight: 16.7 kg

DRUGS (4)
  1. NUTROPIN AQ [Suspect]
     Active Substance: SOMATROPIN
     Indication: CHRONIC KIDNEY DISEASE
     Route: 058
  2. BACTRIM [Concomitant]
     Active Substance: SULFAMETHOXAZOLE\TRIMETHOPRIM
     Route: 065
  3. ROCALTROL [Concomitant]
     Active Substance: CALCITRIOL
     Route: 048
  4. SULFATRIM (UNITED STATES) [Concomitant]
     Route: 048

REACTIONS (1)
  - Urinary tract infection enterococcal [Recovered/Resolved]
